FAERS Safety Report 10789703 (Version 2)
Quarter: 2015Q1

REPORT INFORMATION
  Report Type: Spontaneous
  Country: DE (occurrence: DE)
  Receive Date: 20150212
  Receipt Date: 20150303
  Transmission Date: 20150721
  Serious: Yes (Death, Life-Threatening)
  Sender: FDA-Public Use
  Company Number: DE-JNJFOC-20150206829

PATIENT
  Sex: Male
  Weight: 75 kg

DRUGS (3)
  1. IMBRUVICA [Suspect]
     Active Substance: IBRUTINIB
     Indication: CHRONIC LYMPHOCYTIC LEUKAEMIA
     Route: 048
     Dates: start: 20141126, end: 20150202
  2. ALLOPURINOL. [Concomitant]
     Active Substance: ALLOPURINOL
  3. VALSARTAN. [Concomitant]
     Active Substance: VALSARTAN
     Indication: HYPERTENSION
     Route: 048

REACTIONS (2)
  - Acute hepatic failure [Fatal]
  - Systemic mycosis [Fatal]

NARRATIVE: CASE EVENT DATE: 201502
